FAERS Safety Report 24062165 (Version 1)
Quarter: 2024Q3

REPORT INFORMATION
  Report Type: Spontaneous
  Country: US (occurrence: None)
  Receive Date: 20240707
  Receipt Date: 20240707
  Transmission Date: 20241016
  Serious: Yes (Hospitalization, Disabling, Other)
  Sender: Public
  Company Number: None

PATIENT
  Age: 35 Year
  Sex: Male
  Weight: 78.75 kg

DRUGS (1)
  1. AVODART [Suspect]
     Active Substance: DUTASTERIDE
     Dosage: 1 CAPSULE DAILY ORAL
     Route: 048
     Dates: start: 20231010, end: 20231215

REACTIONS (7)
  - Penis disorder [None]
  - Erectile dysfunction [None]
  - Loss of libido [None]
  - Depression [None]
  - Panic attack [None]
  - Anxiety [None]
  - Suicidal ideation [None]

NARRATIVE: CASE EVENT DATE: 20231215
